FAERS Safety Report 10345692 (Version 4)
Quarter: 2016Q1

REPORT INFORMATION
  Report Type: Spontaneous
  Country: US (occurrence: US)
  Receive Date: 20140728
  Receipt Date: 20160309
  Transmission Date: 20160525
  Serious: Yes (Hospitalization, Congenital Anomaly, Other)
  Sender: FDA-Public Use
  Company Number: US-ELI_LILLY_AND_COMPANY-US201407006568

PATIENT
  Age: 0 Day
  Sex: Female

DRUGS (2)
  1. PROZAC [Suspect]
     Active Substance: FLUOXETINE HYDROCHLORIDE
     Indication: PRODUCT USED FOR UNKNOWN INDICATION
     Route: 064
  2. PROZAC [Suspect]
     Active Substance: FLUOXETINE HYDROCHLORIDE
     Indication: PRODUCT USED FOR UNKNOWN INDICATION
     Route: 064

REACTIONS (17)
  - Hypotonia [Unknown]
  - Talipes [Unknown]
  - Spina bifida [Unknown]
  - Neurodevelopmental disorder [Unknown]
  - Seizure [Unknown]
  - Feeding intolerance [Unknown]
  - Pneumonia aspiration [Unknown]
  - Hypertonia [Unknown]
  - Weight decreased [Recovered/Resolved]
  - Hydrocephalus [Unknown]
  - Rash [Unknown]
  - Foetal exposure during pregnancy [Recovered/Resolved]
  - Premature baby [Unknown]
  - Rectal prolapse [Unknown]
  - Tracheomalacia [Unknown]
  - Constipation [Unknown]
  - Urinary tract infection [Unknown]

NARRATIVE: CASE EVENT DATE: 20070123
